FAERS Safety Report 24151689 (Version 2)
Quarter: 2025Q3

REPORT INFORMATION
  Report Type: Spontaneous
  Country: US (occurrence: US)
  Receive Date: 20240730
  Receipt Date: 20250730
  Transmission Date: 20251021
  Serious: No
  Sender: GALPHARM INTERNATIONAL
  Company Number: US-PERRIGO-24US004397

PATIENT

DRUGS (3)
  1. LORATADINE [Suspect]
     Active Substance: LORATADINE
     Indication: Seasonal allergy
     Route: 048
     Dates: start: 2004
  2. LORATADINE [Suspect]
     Active Substance: LORATADINE
     Indication: Product used for unknown indication
     Route: 048
     Dates: start: 20240412, end: 20240412
  3. LORATADINE [Suspect]
     Active Substance: LORATADINE
     Route: 048

REACTIONS (2)
  - Therapeutic product effect decreased [Unknown]
  - Drug ineffective [Unknown]
